FAERS Safety Report 22310196 (Version 1)
Quarter: 2023Q2

REPORT INFORMATION
  Report Type: Spontaneous
  Country: CA (occurrence: CA)
  Receive Date: 20230511
  Receipt Date: 20230511
  Transmission Date: 20230722
  Serious: Yes (Other)
  Sender: FDA-Public Use
  Company Number: CA-TEVA-2023-CA-2885337

PATIENT
  Age: 17 Year
  Sex: Male

DRUGS (2)
  1. FLUTICASONE PROPIONATE [Suspect]
     Active Substance: FLUTICASONE PROPIONATE
     Indication: Asthma
     Route: 065
  2. BUDESONIDE [Suspect]
     Active Substance: BUDESONIDE
     Indication: Asthma
     Dosage: 2 MILLIGRAM DAILY;
     Route: 048

REACTIONS (10)
  - Adrenal insufficiency [Unknown]
  - Adrenocortical insufficiency acute [Unknown]
  - Asthenia [Unknown]
  - Headache [Unknown]
  - Hypotension [Unknown]
  - Meningitis viral [Unknown]
  - Pain [Unknown]
  - Stress [Unknown]
  - Upper respiratory tract infection [Unknown]
  - Drug ineffective [Unknown]
